FAERS Safety Report 9497481 (Version 1)
Quarter: 2013Q3

REPORT INFORMATION
  Report Type: Spontaneous
  Country: GB (occurrence: None)
  Receive Date: 20130830
  Receipt Date: 20130830
  Transmission Date: 20140515
  Serious: Yes (Hospitalization)
  Sender: FDA-Public Use
  Company Number: AUR-APL-2013-07060

PATIENT
  Age: 30 Year
  Sex: Male

DRUGS (15)
  1. CIPROFLOXACIN [Suspect]
     Indication: INFECTION
     Dosage: 1000 MG (500 MG, 2 IN 1D), ORAL
     Route: 048
     Dates: start: 20130723, end: 20130724
  2. CO-TRIMOXAZOLE [Suspect]
     Indication: INFECTION
     Dosage: 1920 MG (960 MG, 2 IN 1 D), INTRAVENOUS
     Route: 042
     Dates: start: 20130716
  3. CODEINE (CODEINE) [Concomitant]
  4. DIAZEPAM (DIAZEPAM) [Concomitant]
  5. DOCUSATE (DOCUSATE) [Concomitant]
  6. ERTAPENEM (ETRAPENEM) [Concomitant]
  7. IBUPROFEN (IBURPROFEN) [Concomitant]
  8. MORPHINE [Concomitant]
  9. NEFOPAM (NEFOPAM) [Concomitant]
  10. PARACETAMOL (PARACETAMOL) [Concomitant]
  11. SENNA (SENNA ALEXANDRINA) [Concomitant]
  12. SUMATRIPTAN (SUMATRIPTAN) [Concomitant]
  13. TEICOPLANIN (TEICOPLANIN) [Concomitant]
  14. TINZAPARIN (TINZAPARIN) [Concomitant]
  15. TOPIRAMATE (TOPIRAMATE) [Concomitant]

REACTIONS (8)
  - Rash erythematous [None]
  - Exfoliative rash [None]
  - Rash [None]
  - Pruritus [None]
  - White blood cell count decreased [None]
  - Neutropenia [None]
  - Mouth ulceration [None]
  - Rash [None]
